FAERS Safety Report 9885051 (Version 2)
Quarter: 2014Q1

REPORT INFORMATION
  Report Type: Spontaneous
  Country: BR (occurrence: BR)
  Receive Date: 20140210
  Receipt Date: 20140210
  Transmission Date: 20141002
  Serious: Yes (Other)
  Sender: FDA-Public Use
  Company Number: BR-JNJFOC-20130902921

PATIENT
  Age: 52 Year
  Sex: Female
  Weight: 64 kg

DRUGS (7)
  1. REMICADE [Suspect]
     Indication: CROHN^S DISEASE
     Route: 042
     Dates: start: 20131107
  2. REMICADE [Suspect]
     Indication: CROHN^S DISEASE
     Route: 042
     Dates: start: 2011
  3. SODIUM LEVOTHYROXINE [Concomitant]
     Indication: THYROID DISORDER
     Route: 065
  4. LOSARTAN [Concomitant]
     Indication: BLOOD PRESSURE ABNORMAL
     Route: 065
  5. AMLODIPINE BESYLATE [Concomitant]
     Indication: BLOOD PRESSURE ABNORMAL
     Route: 065
  6. AZATHIOPRINE [Concomitant]
     Route: 065
  7. LEXOTAN [Concomitant]
     Route: 065

REACTIONS (3)
  - Bursitis [Not Recovered/Not Resolved]
  - Dysphonia [Recovered/Resolved]
  - Musculoskeletal pain [Recovered/Resolved]
